FAERS Safety Report 8397679-9 (Version None)
Quarter: 2012Q2

REPORT INFORMATION
  Report Type: 
  Country: None (occurrence: None)
  Receive Date: 20120529
  Receipt Date: 20120529
  Transmission Date: 20120825
  Serious: Yes (Other)
  Sender: FDA-Public Use
  Company Number: None

PATIENT
  Age: 31 Year
  Sex: Female
  Weight: 104.7809 kg

DRUGS (1)
  1. MIRENA [Suspect]
     Indication: CONTRACEPTION
     Dosage: EVERY 5 YEARS INTRA-UTERINE
     Route: 015
     Dates: start: 20110915, end: 20120525

REACTIONS (8)
  - VAGINAL DISCHARGE [None]
  - LIBIDO DECREASED [None]
  - HEADACHE [None]
  - OEDEMA PERIPHERAL [None]
  - ACNE [None]
  - MOOD SWINGS [None]
  - SKIN IRRITATION [None]
  - WEIGHT INCREASED [None]
